FAERS Safety Report 24601564 (Version 2)
Quarter: 2024Q4

REPORT INFORMATION
  Report Type: Spontaneous
  Country: NO (occurrence: NO)
  Receive Date: 20241111
  Receipt Date: 20241113
  Transmission Date: 20250115
  Serious: Yes (Other)
  Sender: ASTELLAS
  Company Number: None

PATIENT
  Age: 83 Year
  Sex: Female

DRUGS (1)
  1. MIRABEGRON [Suspect]
     Active Substance: MIRABEGRON
     Indication: Product used for unknown indication
     Dosage: CONTINUED USE OF MEDICINAL PRODUCT
     Route: 048

REACTIONS (3)
  - Dry mouth [Unknown]
  - Dental caries [Unknown]
  - Poor dental condition [Unknown]
